FAERS Safety Report 12279040 (Version 4)
Quarter: 2019Q2

REPORT INFORMATION
  Report Type: Report from Study
  Country: None (occurrence: CA)
  Receive Date: 20160418
  Receipt Date: 20190503
  Transmission Date: 20190711
  Serious: Yes (Hospitalization, Other)
  Sender: FDA-Public Use
  Company Number: CA-ABBVIE-16K-028-1605603-00

PATIENT
  Age: 66 Year
  Sex: Female

DRUGS (1)
  1. HUMIRA [Suspect]
     Active Substance: ADALIMUMAB
     Indication: CROHN^S DISEASE
     Route: 058
     Dates: start: 20140822

REACTIONS (3)
  - Procedural intestinal perforation [Not Recovered/Not Resolved]
  - Volvulus [Unknown]
  - Splenic rupture [Not Recovered/Not Resolved]

NARRATIVE: CASE EVENT DATE: 201604
